FAERS Safety Report 16575152 (Version 2)
Quarter: 2019Q3

REPORT INFORMATION
  Report Type: Report from Study
  Country: CN (occurrence: CN)
  Receive Date: 20190715
  Receipt Date: 20190717
  Transmission Date: 20191004
  Serious: Yes (Other)
  Sender: FDA-Public Use
  Company Number: PHHY2019CN162696

PATIENT
  Sex: Male

DRUGS (2)
  1. VOTRIENT [Suspect]
     Active Substance: PAZOPANIB HYDROCHLORIDE
     Indication: RENAL CELL CARCINOMA
     Dosage: 800 MG, QD
     Route: 048
     Dates: start: 20180326
  2. NIFEDIPINE. [Concomitant]
     Active Substance: NIFEDIPINE
     Indication: HYPERTENSION
     Route: 065

REACTIONS (2)
  - Renal injury [Unknown]
  - Drug intolerance [Unknown]
